FAERS Safety Report 6621376-0 (Version None)
Quarter: 2010Q1

REPORT INFORMATION
  Report Type: 
  Country: None (occurrence: None)
  Receive Date: 20100309
  Receipt Date: 20100208
  Transmission Date: 20100710
  Serious: No
  Sender: FDA-Public Use
  Company Number: US-BIOGENIDEC-2010BI004448

PATIENT
  Sex: Female

DRUGS (1)
  1. AVONEX [Suspect]
     Indication: MULTIPLE SCLEROSIS
     Route: 030
     Dates: start: 20080201

REACTIONS (7)
  - CYSTITIS [None]
  - DEPRESSION [None]
  - HYPOGLYCAEMIA [None]
  - KIDNEY INFECTION [None]
  - OROPHARYNGEAL PAIN [None]
  - SINUSITIS [None]
  - STRESS [None]
